FAERS Safety Report 18992694 (Version 3)
Quarter: 2021Q3

REPORT INFORMATION
  Report Type: Report from Study
  Country: CA (occurrence: CA)
  Receive Date: 20210310
  Receipt Date: 20210809
  Transmission Date: 20211014
  Serious: Yes (Death, Hospitalization, Other)
  Sender: FDA-Public Use
  Company Number: CA-BAYER-2020-044078

PATIENT
  Age: 79 Year
  Sex: Male

DRUGS (2)
  1. STIVARGA [Suspect]
     Active Substance: REGORAFENIB
     Indication: SARCOMA
     Dosage: DAILY DOSE 120 MG FOR 3 WEEKS THEN 1 WEEK OFF
  2. STIVARGA [Suspect]
     Active Substance: REGORAFENIB
     Indication: SARCOMA
     Dosage: DAILY DOSE 80 MG FOR 3 WEEKS THEN 1 WEEK OFF

REACTIONS (6)
  - Off label use [None]
  - Unevaluable event [None]
  - Death [Fatal]
  - Disease complication [None]
  - Neoplasm malignant [None]
  - Gastric haemorrhage [Recovered/Resolved]

NARRATIVE: CASE EVENT DATE: 20210405
